FAERS Safety Report 20764831 (Version 2)
Quarter: 2022Q2

REPORT INFORMATION
  Report Type: Spontaneous
  Country: US (occurrence: US)
  Receive Date: 20220428
  Receipt Date: 20220518
  Transmission Date: 20220721
  Serious: No
  Sender: FDA-Public Use
  Company Number: US-PFIZER INC-202200463477

PATIENT
  Age: 86 Year
  Sex: Female

DRUGS (1)
  1. IBRANCE [Suspect]
     Active Substance: PALBOCICLIB
     Indication: Breast cancer female
     Dosage: 100 MG, 1X/DAY  (TK 1 PO QD)
     Route: 048
     Dates: start: 20220225

REACTIONS (2)
  - Constipation [Not Recovered/Not Resolved]
  - White blood cell disorder [Unknown]

NARRATIVE: CASE EVENT DATE: 20220101
